FAERS Safety Report 9639856 (Version 1)
Quarter: 2013Q4

REPORT INFORMATION
  Report Type: Spontaneous
  Country: FR (occurrence: FR)
  Receive Date: 20131023
  Receipt Date: 20131023
  Transmission Date: 20140711
  Serious: Yes (Hospitalization, Other)
  Sender: FDA-Public Use
  Company Number: FR-ASTRAZENECA-2013SE77231

PATIENT
  Age: 11659 Day
  Sex: Female

DRUGS (3)
  1. MOPRAL [Suspect]
     Route: 048
     Dates: start: 20130616, end: 20130730
  2. VOGALENE [Concomitant]
     Indication: VOMITING IN PREGNANCY
     Dates: start: 20130601
  3. GAVISCON [Concomitant]
     Indication: VOMITING IN PREGNANCY
     Dates: start: 20130601

REACTIONS (2)
  - Exposure during pregnancy [Unknown]
  - Hypersensitivity vasculitis [Unknown]
